FAERS Safety Report 6997971-6 (Version None)
Quarter: 2010Q3

REPORT INFORMATION
  Report Type: 
  Country: None (occurrence: None)
  Receive Date: 20100920
  Receipt Date: 20100907
  Transmission Date: 20110219
  Serious: Yes (Hospitalization, Disabling, Other)
  Sender: FDA-Public Use
  Company Number: US-CELGENEUS-163-21880-10080732

PATIENT
  Sex: Female

DRUGS (2)
  1. REVLIMID [Suspect]
     Indication: MULTIPLE MYELOMA
     Route: 048
     Dates: start: 20090701
  2. REVLIMID [Suspect]
     Route: 048
     Dates: start: 20100401

REACTIONS (4)
  - BREAST CANCER [None]
  - DEVICE RELATED INFECTION [None]
  - TREATMENT NONCOMPLIANCE [None]
  - UROSEPSIS [None]
